FAERS Safety Report 10941598 (Version 2)
Quarter: 2015Q2

REPORT INFORMATION
  Report Type: Spontaneous
  Country: US (occurrence: US)
  Receive Date: 20150322
  Receipt Date: 20150524
  Transmission Date: 20150821
  Serious: Yes (Other)
  Sender: FDA-Public Use
  Company Number: US-JNJFOC-20140604538

PATIENT
  Sex: Male

DRUGS (4)
  1. DIABETES MEDICATIONS [Concomitant]
     Active Substance: UNSPECIFIED INGREDIENT
  2. STATIN MEDICATIONS [Concomitant]
  3. DIURETIC [Concomitant]
     Active Substance: UNSPECIFIED INGREDIENT
  4. INVOKANA [Suspect]
     Active Substance: CANAGLIFLOZIN
     Indication: DIABETES MELLITUS
     Route: 048
     Dates: start: 2014, end: 2014

REACTIONS (5)
  - Glomerular filtration rate decreased [Unknown]
  - Weight decreased [Not Recovered/Not Resolved]
  - Blood urea increased [Unknown]
  - Blood creatinine increased [Unknown]
  - Dehydration [Unknown]

NARRATIVE: CASE EVENT DATE: 2014
